FAERS Safety Report 8493370-9 (Version None)
Quarter: 2012Q2

REPORT INFORMATION
  Report Type: 
  Country: None (occurrence: None)
  Receive Date: 20120402
  Receipt Date: 20091119
  Transmission Date: 20120825
  Serious: Yes (Other)
  Sender: FDA-Public Use
  Company Number: PHEH2009US16399

PATIENT
  Age: 81 Year
  Sex: Male

DRUGS (5)
  1. LIPITOR [Concomitant]
  2. LEVOTHYROXINE SODIUM [Concomitant]
  3. EXFORGE [Suspect]
     Dosage: 5/160 MG
     Dates: start: 20091110
  4. PLAVIX [Concomitant]
  5. AMLODIPINE [Concomitant]

REACTIONS (1)
  - HYPOTENSION [None]
